FAERS Safety Report 7476832-2 (Version None)
Quarter: 2011Q2

REPORT INFORMATION
  Report Type: 
  Country: None (occurrence: None)
  Receive Date: 20110512
  Receipt Date: 20110316
  Transmission Date: 20111010
  Serious: Yes (Other)
  Sender: FDA-Public Use
  Company Number: PHHY2011CA23401

PATIENT
  Sex: Female

DRUGS (7)
  1. EURO-D [Concomitant]
  2. OXYTROL [Concomitant]
  3. MODULON [Concomitant]
  4. CRESTOR [Concomitant]
  5. ZOLEDRONOC ACID [Suspect]
     Indication: OSTEOPOROSIS
     Dosage: 5 MG, YEARLY
     Route: 042
     Dates: start: 20110201
  6. PROZAC [Concomitant]
  7. HYDREA [Concomitant]

REACTIONS (7)
  - GINGIVAL PAIN [None]
  - PYREXIA [None]
  - ORAL PAIN [None]
  - VIRAEMIA [None]
  - CHILLS [None]
  - NASOPHARYNGITIS [None]
  - MALAISE [None]
